FAERS Safety Report 17957644 (Version 1)
Quarter: 2020Q2

REPORT INFORMATION
  Report Type: Spontaneous
  Country: CZ (occurrence: CZ)
  Receive Date: 20200629
  Receipt Date: 20200629
  Transmission Date: 20200714
  Serious: Yes (Other)
  Sender: FDA-Public Use
  Company Number: NVSC2020CZ127225

PATIENT
  Sex: Male

DRUGS (5)
  1. DOCETAXEL. [Suspect]
     Active Substance: DOCETAXEL
     Indication: SQUAMOUS CELL CARCINOMA OF SKIN
     Dosage: UNK
     Route: 042
  2. CETUXIMAB. [Suspect]
     Active Substance: CETUXIMAB
     Indication: PRODUCT USED FOR UNKNOWN INDICATION
     Dosage: RADIPOTHERPY WITH CETUXIMAB
     Route: 065
     Dates: start: 201901
  3. FLUOROURACIL. [Suspect]
     Active Substance: FLUOROURACIL
     Indication: SQUAMOUS CELL CARCINOMA OF SKIN
     Dosage: UNK
     Route: 065
  4. METHOTREXATE. [Suspect]
     Active Substance: METHOTREXATE
     Indication: SQUAMOUS CELL CARCINOMA OF SKIN
     Dosage: UNK
     Route: 065
  5. CARBOPLATIN. [Suspect]
     Active Substance: CARBOPLATIN
     Indication: SQUAMOUS CELL CARCINOMA OF SKIN
     Dosage: UNK
     Route: 065

REACTIONS (7)
  - Drug resistance [Unknown]
  - Drug ineffective for unapproved indication [Unknown]
  - Mucosal inflammation [Recovered/Resolved]
  - Drug intolerance [Recovered/Resolved]
  - Squamous cell carcinoma of skin [Unknown]
  - Malignant neoplasm progression [Unknown]
  - Oral pain [Recovered/Resolved]
